FAERS Safety Report 4389452-3 (Version None)
Quarter: 2004Q3

REPORT INFORMATION
  Report Type: 
  Country: None (occurrence: None)
  Receive Date: 20040702
  Receipt Date: 20040623
  Transmission Date: 20050211
  Serious: Yes (Death)
  Sender: FDA-Public Use
  Company Number: US-MERCK-0406USA02464

PATIENT
  Age: 15 Year
  Sex: Male

DRUGS (5)
  1. CYCLOPHOSPHAMIDE [Concomitant]
     Route: 065
  2. DACARBAZINE [Concomitant]
     Route: 065
  3. COSMEGEN [Suspect]
     Indication: LEIOMYOSARCOMA
     Route: 065
  4. DOXORUBICIN [Concomitant]
     Route: 065
  5. VINCRISTINE SULFATE [Concomitant]
     Route: 065

REACTIONS (1)
  - DISEASE PROGRESSION [None]
